FAERS Safety Report 5499718-1 (Version None)
Quarter: 2007Q4

REPORT INFORMATION
  Report Type: 
  Country: None (occurrence: None)
  Receive Date: 20071026
  Receipt Date: 20071018
  Transmission Date: 20080405
  Serious: Yes (Congenital Anomaly)
  Sender: FDA-Public Use
  Company Number: US-PFIZER INC-2007066577

PATIENT
  Sex: Male
  Weight: 0.1 kg

DRUGS (2)
  1. VIRACEPT [Suspect]
     Indication: HIV INFECTION
     Dosage: DAILY DOSE:2500MG
     Route: 064
  2. COMBIVIR [Suspect]
     Indication: HIV INFECTION
     Dosage: DAILY DOSE:900MG
     Route: 064
     Dates: start: 20070215

REACTIONS (2)
  - DRUG EXPOSURE DURING PREGNANCY [None]
  - POLYDACTYLY [None]
